FAERS Safety Report 6318786-8 (Version None)
Quarter: 2009Q3

REPORT INFORMATION
  Report Type: 
  Country: None (occurrence: None)
  Receive Date: 20090820
  Receipt Date: 20090820
  Transmission Date: 20100115
  Serious: No
  Sender: FDA-Public Use
  Company Number: None

PATIENT
  Sex: Female
  Weight: 123.6052 kg

DRUGS (5)
  1. TOPIRAMATE [Suspect]
     Indication: MIGRAINE PROPHYLAXIS
     Dosage: ONCE BID PO
     Route: 048
     Dates: start: 20090515
  2. WELLBUTRIN XL [Concomitant]
  3. IMITREX [Concomitant]
  4. NAPROXEN [Concomitant]
  5. FLUOXETINE [Concomitant]

REACTIONS (2)
  - MIGRAINE [None]
  - PRODUCT SUBSTITUTION ISSUE [None]
